FAERS Safety Report 7267342-6 (Version None)
Quarter: 2011Q1

REPORT INFORMATION
  Report Type: 
  Country: None (occurrence: None)
  Receive Date: 20110201
  Receipt Date: 20100504
  Transmission Date: 20110831
  Serious: No
  Sender: FDA-Public Use
  Company Number: A0852913A

PATIENT
  Age: 65 Year
  Sex: Female
  Weight: 54.1 kg

DRUGS (2)
  1. ARIXTRA [Suspect]
     Dosage: 2.5MG PER DAY
     Route: 058
     Dates: start: 20090901
  2. UNSPECIFIED MEDICATIONS [Concomitant]

REACTIONS (2)
  - FIBRIN D DIMER INCREASED [None]
  - PRODUCT QUALITY ISSUE [None]
